FAERS Safety Report 19248425 (Version 1)
Quarter: 2021Q2

REPORT INFORMATION
  Report Type: Spontaneous
  Country: US (occurrence: US)
  Receive Date: 20210512
  Receipt Date: 20210512
  Transmission Date: 20210717
  Serious: No
  Sender: FDA-Public Use
  Company Number: US-PFIZER INC-2021319662

PATIENT
  Age: 76 Year
  Sex: Male
  Weight: 102.95 kg

DRUGS (5)
  1. AFRIN [OXYMETAZOLINE] [Concomitant]
     Dosage: UNK
  2. INLYTA [Suspect]
     Active Substance: AXITINIB
     Indication: RENAL CANCER METASTATIC
     Dosage: 5 MG, 2X/DAY
     Route: 048
     Dates: start: 20200125
  3. CHILDREN^S FLONASE ALLERGY RELIEF [Concomitant]
     Dosage: UNK
  4. ALBUTEROL SULFATE. [Concomitant]
     Active Substance: ALBUTEROL SULFATE
     Dosage: UNK
  5. MAGNESIUM [Concomitant]
     Active Substance: MAGNESIUM
     Dosage: UNK

REACTIONS (3)
  - Oedema peripheral [Not Recovered/Not Resolved]
  - Dysphonia [Unknown]
  - Constipation [Unknown]
